FAERS Safety Report 4977052-3 (Version None)
Quarter: 2006Q2

REPORT INFORMATION
  Report Type: 
  Country: None (occurrence: None)
  Receive Date: 20060412
  Receipt Date: 20060403
  Transmission Date: 20061013
  Serious: Yes (Death)
  Sender: FDA-Public Use
  Company Number: 200611684BWH

PATIENT
  Age: 76 Year
  Sex: Female

DRUGS (1)
  1. LEVITRA [Suspect]
     Dosage: ORAL
     Route: 048

REACTIONS (2)
  - BONE CANCER METASTATIC [None]
  - PROSTATE CANCER METASTATIC [None]
